FAERS Safety Report 25224561 (Version 1)
Quarter: 2025Q2

REPORT INFORMATION
  Report Type: Spontaneous
  Country: FR (occurrence: FR)
  Receive Date: 20250422
  Receipt Date: 20250422
  Transmission Date: 20250716
  Serious: Yes (Other)
  Sender: GILEAD
  Company Number: None

PATIENT
  Age: 73 Year
  Sex: Female

DRUGS (1)
  1. TRODELVY [Suspect]
     Active Substance: SACITUZUMAB GOVITECAN-HZIY
     Indication: Triple negative breast cancer
     Route: 042
     Dates: start: 20230328

REACTIONS (10)
  - Aphthous ulcer [Recovering/Resolving]
  - Myalgia [Recovering/Resolving]
  - Mucosal inflammation [Recovering/Resolving]
  - Visual impairment [Recovering/Resolving]
  - Hyperkalaemia [Recovering/Resolving]
  - Hyperthermia [Recovering/Resolving]
  - Rhinorrhoea [Recovering/Resolving]
  - Asthenia [Recovering/Resolving]
  - Diarrhoea [Recovering/Resolving]
  - Abdominal pain [Recovering/Resolving]

NARRATIVE: CASE EVENT DATE: 20230401
